FAERS Safety Report 16172875 (Version 1)
Quarter: 2019Q2

REPORT INFORMATION
  Report Type: Spontaneous
  Country: ES (occurrence: ES)
  Receive Date: 20190409
  Receipt Date: 20190409
  Transmission Date: 20190711
  Serious: Yes (Hospitalization, Other)
  Sender: FDA-Public Use
  Company Number: ES-AUROBINDO-AUR-APL-2019-018181

PATIENT

DRUGS (3)
  1. METAMIZOLE [Suspect]
     Active Substance: METAMIZOLE
     Indication: HYPERSENSITIVITY
     Dosage: UNK
     Route: 065
  2. IBUPROFEN FILM-COATED TABLET [Suspect]
     Active Substance: IBUPROFEN
     Indication: PRODUCT USED FOR UNKNOWN INDICATION
     Dosage: UNK
     Route: 048
     Dates: start: 200612
  3. ACETYLSALICYLIC ACID [Suspect]
     Active Substance: ASPIRIN
     Indication: HYPERSENSITIVITY
     Dosage: UNK
     Route: 065

REACTIONS (7)
  - Kounis syndrome [Recovered/Resolved]
  - Chest pain [Recovered/Resolved]
  - Acute myocardial infarction [Recovered/Resolved]
  - Abdominal pain upper [Recovered/Resolved]
  - Arteriospasm coronary [Recovered/Resolved]
  - Malaise [Recovered/Resolved]
  - Peripheral ischaemia [Recovered/Resolved]

NARRATIVE: CASE EVENT DATE: 200612
